FAERS Safety Report 11131453 (Version 5)
Quarter: 2015Q3

REPORT INFORMATION
  Report Type: Spontaneous
  Country: JP (occurrence: JP)
  Receive Date: 20150522
  Receipt Date: 20150805
  Transmission Date: 20151125
  Serious: Yes (Death, Other)
  Sender: FDA-Public Use
  Company Number: JP-BAYER-2015-227310

PATIENT
  Age: 62 Year
  Sex: Female
  Weight: 40 kg

DRUGS (1)
  1. STIVARGA [Suspect]
     Active Substance: REGORAFENIB
     Indication: RECTAL CANCER
     Dosage: 120 MG, QD (FOR 3 WEEKS AND OFF FOR 1 WEEK)
     Route: 048
     Dates: start: 20150428, end: 2015

REACTIONS (4)
  - Myocardial infarction [None]
  - Dyslalia [Not Recovered/Not Resolved]
  - Cardiac failure [Fatal]
  - Hemiplegia [Not Recovered/Not Resolved]

NARRATIVE: CASE EVENT DATE: 2015
